FAERS Safety Report 8021547-5 (Version None)
Quarter: 2012Q1

REPORT INFORMATION
  Report Type: 
  Country: None (occurrence: None)
  Receive Date: 20120104
  Receipt Date: 20111227
  Transmission Date: 20120608
  Serious: Yes (Other)
  Sender: FDA-Public Use
  Company Number: US-SANOFI-AVENTIS-2011SA002042

PATIENT
  Age: 69 Year
  Sex: Male
  Weight: 78.6 kg

DRUGS (7)
  1. ASPIRIN [Concomitant]
  2. SIMVASTATIN [Concomitant]
  3. METOPROLOL TARTRATE [Concomitant]
  4. FENOFIBRATE [Concomitant]
  5. FISH OIL [Concomitant]
  6. CALCIUM/MAGNESIUM [Concomitant]
  7. MULTAQ [Suspect]
     Indication: ATRIAL FIBRILLATION
     Route: 048
     Dates: start: 20100901

REACTIONS (7)
  - CARDIAC FLUTTER [None]
  - HEART RATE INCREASED [None]
  - ASTHENIA [None]
  - DRUG DOSE OMISSION [None]
  - CHEST PAIN [None]
  - FATIGUE [None]
  - BLOOD PRESSURE INCREASED [None]
